FAERS Safety Report 18822965 (Version 8)
Quarter: 2022Q1

REPORT INFORMATION
  Report Type: Report from Study
  Country: US (occurrence: US)
  Receive Date: 20210202
  Receipt Date: 20220304
  Transmission Date: 20220423
  Serious: Yes (Other)
  Sender: FDA-Public Use
  Company Number: NVSC2021US024345

PATIENT
  Sex: Female

DRUGS (5)
  1. COSENTYX [Suspect]
     Active Substance: SECUKINUMAB
     Indication: Ankylosing spondylitis
     Dosage: 150 MG, QMO
     Route: 058
  2. COSENTYX [Suspect]
     Active Substance: SECUKINUMAB
     Dosage: 150 MG, UNKNOWN
     Route: 058
  3. COSENTYX [Suspect]
     Active Substance: SECUKINUMAB
     Dosage: 300 MG, QMO
     Route: 065
  4. COSENTYX [Suspect]
     Active Substance: SECUKINUMAB
     Dosage: 150 MG, UNKNOWN
     Route: 058
  5. COSENTYX [Suspect]
     Active Substance: SECUKINUMAB
     Dosage: 150 MG, UNKNOWN
     Route: 058

REACTIONS (16)
  - Psoriatic arthropathy [Unknown]
  - Ankylosing spondylitis [Unknown]
  - Diarrhoea [Unknown]
  - Injection site pain [Not Recovered/Not Resolved]
  - Headache [Unknown]
  - Pyrexia [Unknown]
  - Ageusia [Unknown]
  - Anosmia [Unknown]
  - Sunburn [Unknown]
  - Arthralgia [Unknown]
  - Psoriasis [Unknown]
  - Pain in extremity [Unknown]
  - Injection site reaction [Unknown]
  - Injection site bruising [Unknown]
  - COVID-19 [Unknown]
  - Pruritus [Unknown]
